FAERS Safety Report 9604670 (Version 1)
Quarter: 2013Q4

REPORT INFORMATION
  Report Type: Spontaneous
  Country: US (occurrence: US)
  Receive Date: 20131008
  Receipt Date: 20131008
  Transmission Date: 20140711
  Serious: No
  Sender: FDA-Public Use
  Company Number: US-PFIZER INC-2013283196

PATIENT
  Age: 65 Year
  Sex: Male

DRUGS (17)
  1. XELJANZ [Suspect]
     Indication: RHEUMATOID ARTHRITIS
     Dosage: 5 MG, 2X/DAY
     Route: 048
  2. HYDROCHLOROTHIAZIDE/METOPROLOL [Concomitant]
     Dosage: METOPROLOL 100 MG/ HYDROCHLOROTHIAZIDE 25 MG
  3. ZETIA [Concomitant]
     Dosage: 10 MG
  4. CENTRUM [Concomitant]
     Dosage: UNK
  5. LIPITOR [Concomitant]
     Dosage: 80 MG
  6. GABAPENTIN [Concomitant]
     Dosage: 300 MG
  7. FOLIC ACID [Concomitant]
     Dosage: 1 MG
  8. DIAZEPAM [Concomitant]
     Dosage: 10 MG
  9. VIMOVO [Concomitant]
     Dosage: NAPROXEN 500MG/ ESOMEPRAZOLE MAGNESIUM 20 MG
  10. NEXIUM [Concomitant]
     Dosage: 40 MG
  11. TRIAMTERENE HYDROCHLORIDE [Concomitant]
     Dosage: TRIAMTERENE 37.5 MG/ HYDROCHLORIDE 25 MG
  12. TYLENOL [Concomitant]
     Dosage: 650 MG CAPLET
  13. ASPIRIN [Concomitant]
     Dosage: 81 MG
  14. CALCIUM WITH VITAMIN D [Concomitant]
     Dosage: UNK
  15. CO-Q-10 [Concomitant]
     Dosage: 100 MG
  16. GINGER [Concomitant]
     Dosage: UNK
  17. METHOTREXATE [Concomitant]
     Dosage: 25 MG/ML, VIAL

REACTIONS (2)
  - Nausea [Unknown]
  - Diarrhoea [Unknown]
